FAERS Safety Report 6091358-9 (Version None)
Quarter: 2009Q1

REPORT INFORMATION
  Report Type: 
  Country: None (occurrence: None)
  Receive Date: 20090223
  Receipt Date: 20090209
  Transmission Date: 20090719
  Serious: Yes (Disabling)
  Sender: FDA-Public Use
  Company Number: IDA-00183

PATIENT
  Age: 50 Year
  Sex: Female

DRUGS (9)
  1. PROPRANOLOL [Suspect]
     Indication: ANXIETY
     Dosage: 40 MG TID ORAL
     Route: 048
     Dates: start: 20090112
  2. (AMITRIPTYLINE) [Concomitant]
  3. CLOTRIMAZOLE [Concomitant]
  4. DIAZEPAM [Concomitant]
  5. ESCITALOPRAM [Concomitant]
  6. ACETAMINOPHEN [Concomitant]
  7. PHENERGAN [Concomitant]
  8. TRAMADOL HCL [Concomitant]
  9. (ZOPICLONE) [Concomitant]

REACTIONS (3)
  - CONFUSIONAL STATE [None]
  - HYPOAESTHESIA [None]
  - RESTLESS LEGS SYNDROME [None]
